FAERS Safety Report 11652438 (Version 2)
Quarter: 2015Q4

REPORT INFORMATION
  Report Type: Report from Study
  Country: BR (occurrence: BR)
  Receive Date: 20151022
  Receipt Date: 20151026
  Transmission Date: 20160304
  Serious: Yes (Hospitalization)
  Sender: FDA-Public Use
  Company Number: BR-ABBVIE-15K-020-1484503-00

PATIENT
  Age: 50 Year
  Sex: Male
  Weight: 80 kg

DRUGS (3)
  1. ARAVA [Suspect]
     Active Substance: LEFLUNOMIDE
     Indication: RHEUMATOID ARTHRITIS
     Route: 065
     Dates: end: 201508
  2. HUMIRA [Suspect]
     Active Substance: ADALIMUMAB
     Indication: RHEUMATOID ARTHRITIS
     Route: 058
     Dates: start: 20120101, end: 2014
  3. METHOTREXATE [Suspect]
     Active Substance: METHOTREXATE
     Indication: RHEUMATOID ARTHRITIS
     Route: 065
     Dates: end: 201509

REACTIONS (14)
  - Pharyngitis [Not Recovered/Not Resolved]
  - Immunodeficiency [Unknown]
  - Malaise [Unknown]
  - International normalised ratio increased [Unknown]
  - Tongue haematoma [Not Recovered/Not Resolved]
  - Oral discomfort [Recovering/Resolving]
  - Skin wound [Recovered/Resolved]
  - Haematospermia [Recovered/Resolved]
  - Oesophageal pain [Recovering/Resolving]
  - Weight decreased [Recovered/Resolved]
  - Haematoma [Recovered/Resolved]
  - Chest pain [Recovering/Resolving]
  - Bone marrow disorder [Unknown]
  - Cough [Recovered/Resolved]

NARRATIVE: CASE EVENT DATE: 201508
